FAERS Safety Report 7008394-8 (Version None)
Quarter: 2010Q3

REPORT INFORMATION
  Report Type: 
  Country: None (occurrence: None)
  Receive Date: 20100922
  Receipt Date: 20100914
  Transmission Date: 20110219
  Serious: Yes (Hospitalization)
  Sender: FDA-Public Use
  Company Number: B0672166A

PATIENT
  Age: 28 Year
  Sex: Male

DRUGS (7)
  1. LAMOTRIGINE [Suspect]
     Indication: BIPOLAR DISORDER
     Dosage: 25MG PER DAY
     Route: 048
  2. FLUOXETINE [Concomitant]
     Dosage: 40MG PER DAY
  3. VENLAFAXINE [Concomitant]
     Dosage: 150MG PER DAY
  4. VALPROATE SODIUM [Concomitant]
     Dosage: 1500MG PER DAY
  5. QUETIAPINE [Concomitant]
     Dosage: 75MG PER DAY
  6. LORAZEPAM [Concomitant]
     Dosage: 1MG PER DAY
  7. IMMUNE GLOBULIN NOS [Concomitant]

REACTIONS (29)
  - ALANINE AMINOTRANSFERASE INCREASED [None]
  - APHAGIA [None]
  - ARTHRALGIA [None]
  - ASPARTATE AMINOTRANSFERASE INCREASED [None]
  - ASTHENIA [None]
  - BACTERIAL INFECTION [None]
  - BURNING SENSATION [None]
  - C-REACTIVE PROTEIN INCREASED [None]
  - DISEASE PROGRESSION [None]
  - DRUG HYPERSENSITIVITY [None]
  - ERYTHEMA MULTIFORME [None]
  - EYE PRURITUS [None]
  - FIBRIN D DIMER INCREASED [None]
  - GENERAL PHYSICAL HEALTH DETERIORATION [None]
  - HYPOKALAEMIA [None]
  - HYPOPROTEINAEMIA [None]
  - MUCOSAL ULCERATION [None]
  - NIKOLSKY'S SIGN [None]
  - OEDEMA [None]
  - PRURITUS [None]
  - PYREXIA [None]
  - RASH MACULAR [None]
  - RASH PUSTULAR [None]
  - SKIN DISORDER [None]
  - SKIN EXFOLIATION [None]
  - SKIN NECROSIS [None]
  - STEVENS-JOHNSON SYNDROME [None]
  - TOXIC EPIDERMAL NECROLYSIS [None]
  - ULCER [None]
